FAERS Safety Report 4808630-X (Version None)
Quarter: 2005Q4

REPORT INFORMATION
  Report Type: 
  Country: None (occurrence: None)
  Receive Date: 20051021
  Receipt Date: 20041004
  Transmission Date: 20060501
  Serious: Yes (Hospitalization)
  Sender: FDA-Public Use
  Company Number: AU_041008093

PATIENT
  Age: 23 Year
  Sex: Male

DRUGS (2)
  1. OLANZAPINE [Suspect]
     Indication: MANIA
     Dosage: 20 MG DAY
     Route: 048
     Dates: start: 20040809, end: 20040912
  2. EPILIM               (VALPROATE SODIUM) [Concomitant]

REACTIONS (5)
  - ANAEMIA [None]
  - HYPERHIDROSIS [None]
  - NAUSEA [None]
  - RETICULOCYTE COUNT INCREASED [None]
  - SEDATION [None]
